FAERS Safety Report 9847703 (Version 2)
Quarter: 2014Q1

REPORT INFORMATION
  Report Type: Spontaneous
  Country: US (occurrence: US)
  Receive Date: 20140128
  Receipt Date: 20140211
  Transmission Date: 20141002
  Serious: Yes (Hospitalization)
  Sender: FDA-Public Use
  Company Number: US-BIOGENIDEC-2014BI006645

PATIENT
  Age: 59 Year
  Sex: Male

DRUGS (1)
  1. TYSABRI [Suspect]
     Indication: MULTIPLE SCLEROSIS
     Route: 042
     Dates: start: 20130410

REACTIONS (4)
  - Hypopnoea [Recovered/Resolved]
  - Hypertension [Recovered/Resolved]
  - Vertigo [Recovered/Resolved]
  - Hypersensitivity [Recovered/Resolved]
